FAERS Safety Report 9685974 (Version 2)
Quarter: 2013Q4

REPORT INFORMATION
  Report Type: Spontaneous
  Country: US (occurrence: US)
  Receive Date: 20131113
  Receipt Date: 20131113
  Transmission Date: 20140711
  Serious: No
  Sender: FDA-Public Use
  Company Number: US-ALLERGAN-1309193US

PATIENT
  Age: 7 Decade
  Sex: Male

DRUGS (5)
  1. COMBIGAN [Suspect]
     Indication: GLAUCOMA
     Dosage: 2 GTT, BID
     Route: 047
     Dates: start: 20130529
  2. LISINOPRIL [Concomitant]
     Indication: HYPERTENSION
     Dosage: 2.5 MG, QAM
     Route: 048
  3. MELATONIN [Concomitant]
     Indication: INSOMNIA
     Dosage: 1 MG, QHS
     Route: 048
  4. MAXITROL [Concomitant]
     Indication: EYE INFECTION BACTERIAL
     Dosage: 1 GTT, BID
     Route: 047
     Dates: start: 20130619, end: 20130621
  5. MAXITROL [Concomitant]
     Dosage: 1 GTT, QID
     Route: 047
     Dates: start: 20130615, end: 20130619

REACTIONS (2)
  - Insomnia [Recovering/Resolving]
  - Blood pressure decreased [Unknown]
